FAERS Safety Report 9168995 (Version 2)
Quarter: 2013Q1

REPORT INFORMATION
  Report Type: Spontaneous
  Country: JP (occurrence: JP)
  Receive Date: 20130318
  Receipt Date: 20130327
  Transmission Date: 20140127
  Serious: Yes (Other)
  Sender: FDA-Public Use
  Company Number: JP-BAYER-2013-029769

PATIENT
  Age: 34 Year
  Sex: Female
  Weight: 61 kg

DRUGS (2)
  1. ADALAT CR [Suspect]
     Indication: HYPERTENSION
     Dosage: 20 MG, QD
     Route: 048
     Dates: start: 201201, end: 2012
  2. ADALAT CR [Suspect]
     Indication: HYPERTENSION
     Dosage: 40 MG, QD
     Route: 048

REACTIONS (2)
  - Primary hyperaldosteronism [None]
  - Exposure during breast feeding [None]
